FAERS Safety Report 24113448 (Version 2)
Quarter: 2024Q3

REPORT INFORMATION
  Report Type: Spontaneous
  Country: US (occurrence: US)
  Receive Date: 20240720
  Receipt Date: 20240722
  Transmission Date: 20241017
  Serious: No
  Sender: NOVARTIS
  Company Number: US-002147023-NVSC2024US143798

PATIENT

DRUGS (1)
  1. LUTATHERA [Suspect]
     Active Substance: LUTETIUM OXODOTREOTIDE LU-177
     Indication: Pancreatic neuroendocrine tumour
     Dosage: UNK
     Route: 065
     Dates: start: 2022

REACTIONS (6)
  - Fibrosis [Unknown]
  - Limb discomfort [Unknown]
  - Cartilage atrophy [Unknown]
  - Muscle tightness [Unknown]
  - Condition aggravated [Unknown]
  - Myalgia [Unknown]
